FAERS Safety Report 26169784 (Version 1)
Quarter: 2025Q4

REPORT INFORMATION
  Report Type: Spontaneous
  Country: US (occurrence: None)
  Receive Date: 20251216
  Receipt Date: 20251216
  Transmission Date: 20260118
  Serious: Yes (Hospitalization)
  Sender: FDA-CTU
  Company Number: None

PATIENT
  Age: 58 Year
  Sex: Female
  Weight: 73.8 kg

DRUGS (13)
  1. RECLAST [Suspect]
     Active Substance: ZOLEDRONIC ACID
     Indication: Osteoporosis
     Dosage: OTHER QUANTITY : 1 INFUSION;?OTHER FREQUENCY : ONE INFUSION YEAR;
     Route: 042
     Dates: start: 20251107, end: 20251107
  2. LUMIGAN [Concomitant]
     Active Substance: BIMATOPROST
  3. Prednisone PRN for asthma [Concomitant]
  4. Duoneb PRN [Concomitant]
  5. VENLAFAXINE HYDROCHLORIDE [Concomitant]
     Active Substance: VENLAFAXINE HYDROCHLORIDE
  6. MONTELUKAST [Concomitant]
     Active Substance: MONTELUKAST
  7. MOUNJARO [Concomitant]
     Active Substance: TIRZEPATIDE
  8. FARXIGA [Concomitant]
     Active Substance: DAPAGLIFLOZIN PROPANEDIOL
  9. Proair HFA inhaler PRN [Concomitant]
  10. ROSUVASTATIN [Concomitant]
     Active Substance: ROSUVASTATIN
  11. Vit D w/ Vit K [Concomitant]
  12. CALCIUM [Concomitant]
     Active Substance: CALCIUM
  13. ZYRTEC [Concomitant]
     Active Substance: CETIRIZINE HYDROCHLORIDE

REACTIONS (13)
  - Pain [None]
  - Arthralgia [None]
  - Muscle spasms [None]
  - Gait disturbance [None]
  - Myalgia [None]
  - Drug ineffective [None]
  - Bone pain [None]
  - Brain natriuretic peptide increased [None]
  - Blood creatine phosphokinase decreased [None]
  - Blood potassium decreased [None]
  - White blood cell count increased [None]
  - Neutrophil count increased [None]
  - Movement disorder [None]

NARRATIVE: CASE EVENT DATE: 20251108
